FAERS Safety Report 8875637 (Version 2)
Quarter: 2012Q4

REPORT INFORMATION
  Report Type: 
  Country: FR (occurrence: FR)
  Receive Date: 20121030
  Receipt Date: 20121205
  Transmission Date: 20130627
  Serious: Yes (Hospitalization)
  Sender: FDA-Public Use
  Company Number: FR-ABBOTT-12P-056-1002243-00

PATIENT
  Age: 53 Year
  Sex: Female

DRUGS (1)
  1. ERYTHROMYCINE [Suspect]
     Indication: GENITAL INFECTION FEMALE
     Dosage: UNK
     Route: 048
     Dates: start: 20120810, end: 20120819

REACTIONS (3)
  - Hepatocellular injury [Unknown]
  - Cholestasis [Unknown]
  - Abdominal pain [Unknown]
